FAERS Safety Report 21674272 (Version 2)
Quarter: 2024Q4

REPORT INFORMATION
  Report Type: Spontaneous
  Country: JP (occurrence: JP)
  Receive Date: 20221202
  Receipt Date: 20241108
  Transmission Date: 20250114
  Serious: Yes (Death, Hospitalization, Other)
  Sender: ANI
  Company Number: JP-ANIPHARMA-2022-JP-000532

PATIENT
  Age: 69 Year
  Sex: Male

DRUGS (9)
  1. CASODEX [Suspect]
     Active Substance: BICALUTAMIDE
     Indication: Prostate cancer
     Dosage: 80 MG QD
     Route: 048
     Dates: start: 2018
  2. LYNPARZA [Suspect]
     Active Substance: OLAPARIB
     Dosage: 400 MG QD / 100 MG BID/ 200 MG DAILY
     Route: 048
     Dates: start: 20210219
  3. DEGARELIX [Concomitant]
     Active Substance: DEGARELIX
     Route: 065
     Dates: start: 2018
  4. DENOSUMAB [Concomitant]
     Active Substance: DENOSUMAB
     Route: 065
     Dates: start: 2018, end: 202006
  5. ENZALUTAMIDE [Concomitant]
     Active Substance: ENZALUTAMIDE
     Route: 065
     Dates: start: 201902
  6. DOCETAXEL [Concomitant]
     Active Substance: DOCETAXEL
     Route: 065
     Dates: start: 202003
  7. CARBAMAZEPINE APS [Concomitant]
     Route: 065
     Dates: start: 202010
  8. ETHINYL ESTRADIOL [Concomitant]
     Active Substance: ETHINYL ESTRADIOL
     Route: 065
     Dates: start: 20210108
  9. INSULIN NOS [Concomitant]
     Active Substance: INSULIN NOS
     Route: 065
     Dates: start: 20210108

REACTIONS (11)
  - Anaemia [Unknown]
  - Disease progression [Unknown]
  - Haemoglobin decreased [Unknown]
  - Blood lactate dehydrogenase increased [Unknown]
  - Pain in extremity [Unknown]
  - Pancreatic carcinoma recurrent [Recovering/Resolving]
  - Platelet count decreased [Recovered/Resolved]
  - Malignant neoplasm progression [Unknown]
  - Thrombophlebitis migrans [Unknown]
  - Death [Fatal]
  - Osteonecrosis of jaw [Unknown]

NARRATIVE: CASE EVENT DATE: 20200601
